FAERS Safety Report 17601731 (Version 2)
Quarter: 2020Q2

REPORT INFORMATION
  Report Type: Report from Study
  Country: US (occurrence: US)
  Receive Date: 20200330
  Receipt Date: 20200518
  Transmission Date: 20200713
  Serious: Yes (Hospitalization, Other)
  Sender: FDA-Public Use
  Company Number: US-GILEAD-2020-0457136

PATIENT
  Age: 11 Year
  Sex: Female

DRUGS (1)
  1. AZTREONAM LYSINE [Suspect]
     Active Substance: AZTREONAM LYSINE
     Indication: CYSTIC FIBROSIS
     Dosage: 75 MG, TID, EVERY OTHER MONTH
     Route: 055

REACTIONS (2)
  - Cystic fibrosis [Unknown]
  - Cough [Unknown]

NARRATIVE: CASE EVENT DATE: 20200210
